FAERS Safety Report 5212916-7 (Version None)
Quarter: 2007Q1

REPORT INFORMATION
  Report Type: 
  Country: None (occurrence: None)
  Receive Date: 20070118
  Receipt Date: 20070118
  Transmission Date: 20070707
  Serious: No
  Sender: FDA-Public Use
  Company Number: None

PATIENT
  Age: 57 Year
  Sex: Male

DRUGS (2)
  1. PREDNISONE [Suspect]
     Dosage: TABLET
  2. PROTONIX [Suspect]
     Dosage: TABLET

REACTIONS (8)
  - ABDOMINAL PAIN UPPER [None]
  - BLOOD GLUCOSE ABNORMAL [None]
  - DRUG DISPENSING ERROR [None]
  - DYSPEPSIA [None]
  - GASTROOESOPHAGEAL REFLUX DISEASE [None]
  - MEDICATION ERROR [None]
  - WEIGHT INCREASED [None]
  - WRONG DRUG ADMINISTERED [None]
